FAERS Safety Report 10221329 (Version 1)
Quarter: 2014Q2

REPORT INFORMATION
  Report Type: Spontaneous
  Country: US (occurrence: US)
  Receive Date: 20140606
  Receipt Date: 20140606
  Transmission Date: 20141212
  Serious: No
  Sender: FDA-Public Use
  Company Number: US-GLAXOSMITHKLINE-A1072439A

PATIENT
  Age: 71 Year
  Sex: Female

DRUGS (7)
  1. BREO ELLIPTA [Suspect]
     Indication: CHRONIC OBSTRUCTIVE PULMONARY DISEASE
     Dosage: 1PUFF PER DAY
     Route: 055
     Dates: start: 20140506
  2. SPIRIVA [Concomitant]
  3. VENTOLIN HFA [Concomitant]
  4. ZESTORETIC [Concomitant]
  5. ZOCOR [Concomitant]
  6. ASPIRIN [Concomitant]
  7. OXYGEN [Concomitant]

REACTIONS (5)
  - Nausea [Recovered/Resolved]
  - Feeling abnormal [Unknown]
  - Abdominal discomfort [Unknown]
  - Dyskinesia [Unknown]
  - Feeling jittery [Unknown]
